FAERS Safety Report 25803441 (Version 1)
Quarter: 2025Q3

REPORT INFORMATION
  Report Type: Spontaneous
  Country: US (occurrence: US)
  Receive Date: 20250915
  Receipt Date: 20250915
  Transmission Date: 20251021
  Serious: No
  Sender: SANDOZ
  Company Number: US-SANDOZ-SDZ2025US066091

PATIENT
  Sex: Female

DRUGS (2)
  1. APREPITANT [Suspect]
     Active Substance: APREPITANT
     Indication: Product used for unknown indication
     Dosage: 80MG 2HGC  UD V1 US, ONCE A DAY
     Route: 065
  2. APREPITANT [Suspect]
     Active Substance: APREPITANT
     Dosage: 80MG 6HGC UD V1 US, ONCE A DAY
     Route: 065

REACTIONS (2)
  - Anxiety [Unknown]
  - Product knowledge deficit [Unknown]
